FAERS Safety Report 8966475 (Version 2)
Quarter: 2013Q1

REPORT INFORMATION
  Report Type: Spontaneous
  Country: US (occurrence: US)
  Receive Date: 20121217
  Receipt Date: 20130108
  Transmission Date: 20140127
  Serious: Yes (Life-Threatening, Hospitalization, Disabling)
  Sender: FDA-Public Use
  Company Number: US-BAYER-2012-131626

PATIENT
  Age: 43 Year
  Sex: Female

DRUGS (6)
  1. YAZ [Suspect]
  2. YASMIN [Suspect]
  3. OCELLA [Suspect]
  4. ELAVIL [Concomitant]
     Indication: MIGRAINE
     Dosage: 25 MG, HS
  5. ZOLOFT [Concomitant]
     Dosage: 50 MG, QD
  6. ORAL CONTRACEPTIVE NOS [Concomitant]
     Indication: MIGRAINE

REACTIONS (8)
  - Pulmonary embolism [Recovered/Resolved]
  - Injury [Recovered/Resolved]
  - Pain [Recovered/Resolved]
  - General physical health deterioration [Recovered/Resolved]
  - Anxiety [None]
  - Anhedonia [None]
  - Emotional distress [None]
  - Pain [None]
